FAERS Safety Report 7120959-1 (Version None)
Quarter: 2010Q4

REPORT INFORMATION
  Report Type: 
  Country: None (occurrence: None)
  Receive Date: 20101124
  Receipt Date: 20101118
  Transmission Date: 20110411
  Serious: Yes (Hospitalization, Other)
  Sender: FDA-Public Use
  Company Number: US-US-EMD SERONO, INC.-7027723

PATIENT
  Sex: Female

DRUGS (3)
  1. REBIF [Suspect]
     Indication: PRODUCT USED FOR UNKNOWN INDICATION
     Route: 058
     Dates: start: 20100712, end: 20101114
  2. REBIF [Suspect]
     Route: 058
     Dates: start: 20101101
  3. MULTI-VITAMIN [Concomitant]
     Dates: end: 20101112

REACTIONS (10)
  - ANXIETY [None]
  - BLOOD POTASSIUM DECREASED [None]
  - HEART RATE DECREASED [None]
  - HEPATIC ENZYME INCREASED [None]
  - HYPERHIDROSIS [None]
  - INFLUENZA LIKE ILLNESS [None]
  - INJECTION SITE REACTION [None]
  - INSOMNIA [None]
  - LOSS OF CONSCIOUSNESS [None]
  - PALPITATIONS [None]
